FAERS Safety Report 8255954-2 (Version None)
Quarter: 2012Q2

REPORT INFORMATION
  Report Type: 
  Country: None (occurrence: None)
  Receive Date: 20120403
  Receipt Date: 20120319
  Transmission Date: 20120825
  Serious: Yes (Other)
  Sender: FDA-Public Use
  Company Number: CA-ROCHE-1051028

PATIENT
  Sex: Female
  Weight: 81.72 kg

DRUGS (5)
  1. ACTEMRA [Suspect]
     Indication: RHEUMATOID ARTHRITIS
     Route: 042
     Dates: start: 20101029
  2. LOSEC (CANADA) [Concomitant]
  3. ACTEMRA [Suspect]
     Route: 042
     Dates: start: 20111216, end: 20120316
  4. ACTEMRA [Suspect]
     Route: 042
     Dates: start: 20110401
  5. ARAVA [Concomitant]

REACTIONS (6)
  - HEADACHE [None]
  - HELICOBACTER INFECTION [None]
  - EYE DISORDER [None]
  - NEOPLASM SKIN [None]
  - NIGHT SWEATS [None]
  - NIGHTMARE [None]
